FAERS Safety Report 8078674-6 (Version None)
Quarter: 2012Q1

REPORT INFORMATION
  Report Type: 
  Country: None (occurrence: None)
  Receive Date: 20120124
  Receipt Date: 20120112
  Transmission Date: 20120608
  Serious: Yes (Hospitalization)
  Sender: FDA-Public Use
  Company Number: 2012S1000042

PATIENT
  Age: 58 Year
  Sex: Female

DRUGS (2)
  1. LIVALO [Suspect]
     Indication: HYPERCHOLESTEROLAEMIA
     Dosage: 1 MG;1X:PO    1 MG;1X;PO
     Route: 048
     Dates: start: 20071101, end: 20080201
  2. LIVALO [Suspect]
     Indication: HYPERCHOLESTEROLAEMIA
     Dosage: 1 MG;1X:PO    1 MG;1X;PO
     Route: 048
     Dates: start: 20080901, end: 20101116

REACTIONS (3)
  - MALAISE [None]
  - BLOOD CREATINE PHOSPHOKINASE INCREASED [None]
  - FACE OEDEMA [None]
